FAERS Safety Report 6531351-2 (Version None)
Quarter: 2010Q1

REPORT INFORMATION
  Report Type: 
  Country: None (occurrence: None)
  Receive Date: 20100108
  Receipt Date: 20091022
  Transmission Date: 20100710
  Serious: No
  Sender: FDA-Public Use
  Company Number: A0809537A

PATIENT
  Age: 60 Year
  Sex: Female

DRUGS (2)
  1. TYKERB [Suspect]
     Indication: BREAST CANCER
     Dosage: 250MG FIVE TIMES PER DAY
     Route: 048
     Dates: start: 20090925
  2. XELODA [Concomitant]
     Route: 048

REACTIONS (5)
  - CONSTIPATION [None]
  - DIZZINESS [None]
  - FATIGUE [None]
  - SKIN CHAPPED [None]
  - SKIN DISCOLOURATION [None]
